FAERS Safety Report 6108225-4 (Version None)
Quarter: 2009Q1

REPORT INFORMATION
  Report Type: 
  Country: None (occurrence: None)
  Receive Date: 20090305
  Receipt Date: 20090305
  Transmission Date: 20090719
  Serious: No
  Sender: FDA-Public Use
  Company Number: None

PATIENT
  Age: 66 Year
  Sex: Male
  Weight: 98 kg

DRUGS (1)
  1. ROSUVASTATIN CALCIUM [Suspect]
     Indication: HYPERLIPIDAEMIA
     Dosage: 5 MG EVERY DAY PO
     Route: 048
     Dates: start: 20090127, end: 20090225

REACTIONS (5)
  - ANGIOEDEMA [None]
  - HYPOAESTHESIA ORAL [None]
  - LIP SWELLING [None]
  - PRURITUS [None]
  - URTICARIA [None]
